FAERS Safety Report 22217240 (Version 3)
Quarter: 2023Q2

REPORT INFORMATION
  Report Type: Report from Study
  Country: US (occurrence: US)
  Receive Date: 20230417
  Receipt Date: 20230420
  Transmission Date: 20230722
  Serious: Yes (Death)
  Sender: FDA-Public Use
  Company Number: US-ABBVIE-4730581

PATIENT
  Age: 82 Year
  Sex: Female

DRUGS (20)
  1. VENCLEXTA [Suspect]
     Active Substance: VENETOCLAX
     Indication: Breast cancer female
     Dosage: FORM STRENGTH: 100 MILLIGRAM, EVERY DAY AT THE SAME TIME EACH DAY FOR 12 DAYS, EVERY 28 DAY CYCLE...
     Route: 048
  2. VENCLEXTA [Suspect]
     Active Substance: VENETOCLAX
     Indication: Breast cancer female
     Dosage: FORM STRENGTH: 100 MILLIGRAM, DAY 3,EVERY DAY AT THE SAME TIME EACH DAY FOR 12 DAYS, EVERY 28 DAY...
     Route: 048
  3. VENCLEXTA [Suspect]
     Active Substance: VENETOCLAX
     Indication: Breast cancer female
     Dosage: FORM STRENGTH: 100 MILLIGRAM , DAY 2, WITH A MEAL AND WATER AT THE SAME TIME EACH DAY
     Route: 048
  4. VENCLEXTA [Suspect]
     Active Substance: VENETOCLAX
     Indication: Breast cancer female
     Dosage: FORM STRENGTH: 100 MILLIGRAM, DAY 1, WITH A MEAL AND WATER AT THE SAME TIME EACH DAY
     Route: 048
     Dates: start: 20221019
  5. GABAPENTIN [Concomitant]
     Active Substance: GABAPENTIN
     Indication: Product used for unknown indication
     Dosage: FORM STRENGTH: 300 MILLIGRAM
     Route: 048
  6. LOSARTAN [Concomitant]
     Active Substance: LOSARTAN
     Indication: Product used for unknown indication
     Dosage: 1 P.O. DAILY, FORM STRENGTH: 25 MILLIGRAM
     Route: 048
  7. PRADAXA [Concomitant]
     Active Substance: DABIGATRAN ETEXILATE MESYLATE
     Indication: Product used for unknown indication
     Dosage: FORM STRENGTH: 150 MILLIGRAM
     Route: 048
  8. calcium-magnesium-zinc [Concomitant]
     Indication: Product used for unknown indication
     Dosage: 333MG-133MG-5MG TABLET
     Route: 048
  9. LEVOFLOXACIN [Concomitant]
     Active Substance: LEVOFLOXACIN
     Indication: Product used for unknown indication
     Dosage: FORM STRENGTH: 500 MILLIGRAM
     Route: 048
     Dates: start: 20221002
  10. HYDROCHLOROTHIAZIDE [Concomitant]
     Active Substance: HYDROCHLOROTHIAZIDE
     Indication: Product used for unknown indication
     Dosage: 1 P.O.Q DAILY, FORM STRENGTH: 25 MILLIGRAM
     Route: 048
  11. ALLOPURINOL [Concomitant]
     Active Substance: ALLOPURINOL
     Indication: Product used for unknown indication
     Dosage: 1 PO DAILY, FORM STRENGTH: 300MILLIGRAM
     Route: 048
     Dates: start: 20221015
  12. ROSUVASTATIN [Concomitant]
     Active Substance: ROSUVASTATIN
     Indication: Product used for unknown indication
     Dosage: FORM STRENGTH: 20 MILIGRAM
     Route: 048
  13. INQOVI [Concomitant]
     Active Substance: CEDAZURIDINE\DECITABINE
     Indication: Product used for unknown indication
     Dosage: 35MG-100MG TABLET, DAYS 1-3 EACH 28 DAYS CYCLE ON AN EMPTY STOMACH 2 HOURS BEFORE OR AFTER FOOD
     Route: 048
  14. LEVOCETIRIZINE [Concomitant]
     Active Substance: LEVOCETIRIZINE
     Indication: Product used for unknown indication
     Dosage: 1 P.O.Q DAY AT BED TIME, FORM STRENGTH: 5MILLIGRAM
     Route: 048
  15. METOPROLOL SUCCINATE [Concomitant]
     Active Substance: METOPROLOL SUCCINATE
     Indication: Product used for unknown indication
     Dosage: 25MG TABLET EXTENDED RELEASE 24 H, ER, FORM STRENGTH: 25 MILLIGRAM
     Route: 048
  16. TRIHEXYPHENIDYL [Concomitant]
     Active Substance: TRIHEXYPHENIDYL
     Indication: Product used for unknown indication
     Dosage: FORM STRENGTH: 2 MILLIGRAM
     Route: 048
  17. LIDOCAINE [Concomitant]
     Active Substance: LIDOCAINE
     Indication: Product used for unknown indication
     Dosage: FORM STRENGTH: 5 PERCENT
     Route: 061
  18. SEMAGLUTIDE [Concomitant]
     Active Substance: SEMAGLUTIDE
     Indication: Product used for unknown indication
     Dosage: 1MG/ DOSE (2MG/1,5ML) PEN INJECTOR, AS DIRECTED
     Route: 058
  19. TRESIBA [Concomitant]
     Active Substance: INSULIN DEGLUDEC
     Indication: Product used for unknown indication
     Dosage: U-100 INSULIN , 100UNIT/ML (3ML) PEN, FLEXTOUCH, FORM STRENGTH: 40 UNIT
     Route: 058
  20. LEVOTHYROXINE [Concomitant]
     Active Substance: LEVOTHYROXINE
     Indication: Product used for unknown indication
     Dosage: FORM STRENGTH: 50 MICROGRAM
     Route: 048

REACTIONS (2)
  - Death [Fatal]
  - Off label use [Unknown]

NARRATIVE: CASE EVENT DATE: 20230118
